FAERS Safety Report 17850412 (Version 1)
Quarter: 2020Q2

REPORT INFORMATION
  Report Type: Spontaneous
  Country: US (occurrence: US)
  Receive Date: 20200602
  Receipt Date: 20200602
  Transmission Date: 20200714
  Serious: Yes (Other)
  Sender: FDA-Public Use
  Company Number: None

PATIENT
  Age: 74 Year

DRUGS (2)
  1. ADVIL [Suspect]
     Active Substance: IBUPROFEN
  2. ALEVE [Suspect]
     Active Substance: NAPROXEN SODIUM

REACTIONS (2)
  - Drug intolerance [None]
  - Gastrointestinal disorder [None]

NARRATIVE: CASE EVENT DATE: 20200602
